FAERS Safety Report 4506923-7 (Version None)
Quarter: 2004Q4

REPORT INFORMATION
  Report Type: 
  Country: None (occurrence: None)
  Receive Date: 20041117
  Receipt Date: 20041103
  Transmission Date: 20050328
  Serious: Yes (Disabling)
  Sender: FDA-Public Use
  Company Number: 2004-SW-00364SW

PATIENT
  Age: 61 Year
  Sex: Female

DRUGS (3)
  1. MICARDIS [Suspect]
     Indication: ESSENTIAL HYPERTENSION
     Dosage: 40 MG (40 MG, 1 IN 24 HR)
     Route: 048
     Dates: start: 20021120, end: 20031210
  2. PLENDIL [Concomitant]
  3. LEVAXIN (LEVOTHYROXINE SODIUM) (TA) [Concomitant]

REACTIONS (6)
  - DRUG INEFFECTIVE [None]
  - EXANTHEM [None]
  - HYPERHIDROSIS [None]
  - IMPAIRED WORK ABILITY [None]
  - PRURITUS [None]
  - RASH GENERALISED [None]
